FAERS Safety Report 4471708-7 (Version None)
Quarter: 2004Q4

REPORT INFORMATION
  Report Type: 
  Country: None (occurrence: None)
  Receive Date: 20041006
  Receipt Date: 20040927
  Transmission Date: 20050328
  Serious: Yes (Other)
  Sender: FDA-Public Use
  Company Number: 2004US001176

PATIENT
  Age: 6 Year
  Sex: Male

DRUGS (3)
  1. PROGRAF [Suspect]
     Indication: BONE MARROW TRANSPLANT
     Dosage: INTRAVENOUS
     Route: 042
  2. PROGRAF [Suspect]
     Indication: RENAL TRANSPLANT
     Dosage: INTRAVENOUS
     Route: 042
  3. METHOTREXATE [Concomitant]

REACTIONS (13)
  - ANOREXIA [None]
  - BONE DEVELOPMENT ABNORMAL [None]
  - DIABETES MELLITUS [None]
  - DRUG INEFFECTIVE [None]
  - GASTROENTERITIS ADENOVIRUS [None]
  - GRAFT VERSUS HOST DISEASE [None]
  - GROWTH RETARDATION [None]
  - MALIGNANT HYPERTENSION [None]
  - NAUSEA [None]
  - NEPHROTIC SYNDROME [None]
  - POST PROCEDURAL COMPLICATION [None]
  - RENAL TRANSPLANT [None]
  - VOMITING [None]
